FAERS Safety Report 9330905 (Version 1)
Quarter: 2013Q2

REPORT INFORMATION
  Report Type: Spontaneous
  Country: US (occurrence: None)
  Receive Date: 20130531
  Receipt Date: 20130531
  Transmission Date: 20140414
  Serious: Yes (Other)
  Sender: FDA-Public Use
  Company Number: CA-ALSI-201300127

PATIENT
  Age: 19 Year
  Sex: Male
  Weight: 75 kg

DRUGS (8)
  1. NITROUS OXIDE [Suspect]
     Dosage: RESPIRATORY
     Route: 055
  2. FORANE [Suspect]
     Dosage: 50 TOTAL RESPIRATORY
     Route: 055
  3. SUCCINYLCHOLINE [Suspect]
  4. THIOPENTAL [Suspect]
  5. TUBOCURARINE [Suspect]
  6. (FENTANYL) [Concomitant]
  7. (MORPHINE) [Concomitant]
  8. (OXYGEN) [Concomitant]

REACTIONS (2)
  - Hepatitis [None]
  - Jaundice [None]
